FAERS Safety Report 5528429-9 (Version None)
Quarter: 2007Q4

REPORT INFORMATION
  Report Type: 
  Country: None (occurrence: None)
  Receive Date: 20071128
  Receipt Date: 20071121
  Transmission Date: 20080405
  Serious: Yes (Disabling, Other)
  Sender: FDA-Public Use
  Company Number: US-ROXANE LABORATORIES, INC-2007-DE-06909GD

PATIENT
  Age: 57 Year
  Sex: Male

DRUGS (11)
  1. MORPHINE [Suspect]
     Indication: BACK PAIN
     Dosage: 2 MG (40 MG/ML), INCREASED TO 13.8 MG OVER 6 MONTHS
     Route: 037
  2. OXYCODONE HCL [Suspect]
     Indication: BACK PAIN
  3. ACETAMINOPHEN AND OXYCODONE HCL [Suspect]
     Indication: BACK PAIN
     Dosage: UP TO 15-18 TABLETS (OXYCODONE/ACETAMINOPHEN 5/325 MG)
     Route: 048
  4. TRAZODONE HCL [Concomitant]
  5. GABAPENTIN [Concomitant]
  6. VENLAFAXINE HCL [Concomitant]
  7. CITALOPRAM [Concomitant]
  8. TIZANDINE [Concomitant]
  9. NABUMETONE [Concomitant]
  10. ALENDRONATE SODIUM [Concomitant]
  11. CLONAZEPAM [Concomitant]

REACTIONS (4)
  - AMNESIA [None]
  - DRUG DEPENDENCE [None]
  - MENTAL STATUS CHANGES [None]
  - ROAD TRAFFIC ACCIDENT [None]
